FAERS Safety Report 10172717 (Version 9)
Quarter: 2015Q2

REPORT INFORMATION
  Report Type: Report from Study
  Country: US (occurrence: None)
  Receive Date: 20140513
  Receipt Date: 20150515
  Transmission Date: 20150821
  Serious: Yes (Death, Hospitalization, Other)
  Sender: FDA-Public Use
  Company Number: TH-2014-00097

PATIENT
  Age: 48 Year
  Sex: Male
  Weight: 132 kg

DRUGS (26)
  1. DONEPEZIL [Concomitant]
     Active Substance: DONEPEZIL
  2. PRISTIQ (DESVENLAFAXINE SUCCINATE) [Concomitant]
     Active Substance: DESVENLAFAXINE SUCCINATE
  3. LURASIDONE [Concomitant]
     Active Substance: LURASIDONE
  4. NORVIR [Concomitant]
     Active Substance: RITONAVIR
  5. B 12 (CYANOCOBALAMIN) [Concomitant]
  6. CEFTRIAXONE. [Concomitant]
     Active Substance: CEFTRIAXONE
  7. EGRIFTA [Suspect]
     Active Substance: TESAMORELIN
     Indication: LIPODYSTROPHY ACQUIRED
     Dosage: 2 MILLIGRAM (2 MG, 1 IN 1 D), SUBCUTANEOUS
     Route: 058
     Dates: start: 20130724, end: 20140425
  8. ATORVASTATIN [Concomitant]
     Active Substance: ATORVASTATIN
     Indication: HYPERLIPIDAEMIA
  9. TESTOSTERONE. [Concomitant]
     Active Substance: TESTOSTERONE
  10. MELOXICAM. [Concomitant]
     Active Substance: MELOXICAM
  11. LYRICA [Concomitant]
     Active Substance: PREGABALIN
  12. CELEBREX [Concomitant]
     Active Substance: CELECOXIB
  13. LAMOTRIGINE. [Concomitant]
     Active Substance: LAMOTRIGINE
     Indication: DEPRESSION
     Dosage: 100 MG 1 IN 5 HR
  14. KETAMINE (KETAMINE) [Concomitant]
     Active Substance: KETAMINE
  15. ABILIFY (ARIPIRPRAZOLE) [Concomitant]
  16. LEVAQUIN [Concomitant]
     Active Substance: LEVOFLOXACIN
  17. DEPO MEDROL (METHYLPREDNISOLONE ACETATE) [Concomitant]
  18. PHENTERMINE [Concomitant]
     Active Substance: PHENTERMINE
     Indication: WEIGHT DECREASED
  19. DETROL LA [Concomitant]
     Active Substance: TOLTERODINE TARTRATE
     Indication: HYPERTONIC BLADDER
  20. OMEPRAZOLE. [Concomitant]
     Active Substance: OMEPRAZOLE
  21. TRUVADA [Concomitant]
     Active Substance: EMTRICITABINE\TENOFOVIR DISOPROXIL FUMARATE
     Dates: start: 2001
  22. DARUNAVIR [Concomitant]
     Active Substance: DARUNAVIR
     Dates: end: 2003
  23. LANSOPRAZOL (LANSOPRAZOLE) [Concomitant]
  24. CYMBALTA [Concomitant]
     Active Substance: DULOXETINE HYDROCHLORIDE
  25. TOPIRAMATE. [Concomitant]
     Active Substance: TOPIRAMATE
     Indication: WEIGHT DECREASED
  26. BETA HYMAN CHORINIC GONADOTROPIN (CHORIONIC GONADOTROPHIN) [Concomitant]

REACTIONS (7)
  - Ankle fracture [None]
  - Abscess [None]
  - Peroneal nerve palsy [None]
  - Compression fracture [None]
  - Infective myositis [None]
  - Compartment syndrome [None]
  - Sudden death [None]

NARRATIVE: CASE EVENT DATE: 20140428
